FAERS Safety Report 17668497 (Version 3)
Quarter: 2020Q2

REPORT INFORMATION
  Report Type: Report from Study
  Country: AR (occurrence: AR)
  Receive Date: 20200415
  Receipt Date: 20200608
  Transmission Date: 20200713
  Serious: Yes (Death, Hospitalization, Other)
  Sender: FDA-Public Use
  Company Number: AR-AMGEN-ARGCT2020060758

PATIENT
  Age: 70 Year
  Sex: Female
  Weight: 75.5 kg

DRUGS (13)
  1. FERROUS SULFATE. [Concomitant]
     Active Substance: FERROUS SULFATE
     Indication: ANAEMIA
     Dosage: 100 MILLIGRAM, QD
     Route: 048
     Dates: start: 20191219, end: 20200403
  2. MONTELUKAST [Concomitant]
     Active Substance: MONTELUKAST SODIUM
     Indication: BRONCHOSPASM
     Dosage: 10 MILLIGRAM, QD
     Route: 048
     Dates: start: 20180120, end: 20200403
  3. FREVIA [Concomitant]
     Active Substance: BUDESONIDE\FORMOTEROL
     Indication: PULMONARY FIBROSIS
     Dosage: UNK, QD (1.00 PUFF, DAILY)
     Route: 055
     Dates: start: 20190605
  4. IRON [Concomitant]
     Active Substance: IRON
     Dosage: 100 MILLIGRAM, (DIA)
     Dates: end: 20200403
  5. METOTREXATE [Suspect]
     Active Substance: METHOTREXATE SODIUM
     Indication: RHEUMATOID ARTHRITIS
     Dosage: 15 MILLIGRAM, QWK
     Route: 065
     Dates: start: 20160220
  6. FOLIC ACID. [Concomitant]
     Active Substance: FOLIC ACID
     Indication: ANAEMIA
     Dosage: 0.5 MILLIGRAM, QD
     Route: 048
     Dates: start: 20191219, end: 20200403
  7. N-ACETYLCYSTEINE [Concomitant]
     Active Substance: ACETYLCYSTEINE
     Indication: BRONCHITIS
     Dosage: 600 MILLIGRAM, QD
     Route: 048
     Dates: start: 20200311, end: 20200403
  8. NOVORAPID [Concomitant]
     Active Substance: INSULIN ASPART
     Indication: DIABETES MELLITUS
     Dosage: 6 INTERNATIONAL UNIT, AS NECESSARY
     Route: 058
     Dates: start: 20200210
  9. VALSARTAN. [Concomitant]
     Active Substance: VALSARTAN
     Dosage: UNK
  10. ETANERCEPT [Suspect]
     Active Substance: ETANERCEPT
     Indication: RHEUMATOID ARTHRITIS
     Dosage: 50 MILLIGRAM, QWK
     Route: 058
     Dates: start: 20160808, end: 20200326
  11. CLONAZEPAM. [Concomitant]
     Active Substance: CLONAZEPAM
     Dosage: 0.5 MILLIGRAM, (H)
     Dates: end: 20200403
  12. CYANOCOBALAMIN. [Concomitant]
     Active Substance: CYANOCOBALAMIN
     Indication: ANAEMIA
     Dosage: 0.2 MILLIGRAM, QD
     Route: 048
     Dates: start: 20191219, end: 20200403
  13. INSULIN HUMAN [Concomitant]
     Active Substance: INSULIN HUMAN
     Indication: DIABETES MELLITUS
     Dosage: 26 INTERNATIONAL UNIT, QD ( UNITS IN THE MORNING AND 8 UNITS IN THE AFTERNOON)
     Route: 058
     Dates: start: 20200210

REACTIONS (1)
  - Enterocolitis [Fatal]

NARRATIVE: CASE EVENT DATE: 20200330
